FAERS Safety Report 4905744-0 (Version None)
Quarter: 2006Q1

REPORT INFORMATION
  Report Type: 
  Country: None (occurrence: None)
  Receive Date: 20060208
  Receipt Date: 20051001
  Transmission Date: 20060701
  Serious: Yes (Hospitalization, Disabling, Other)
  Sender: FDA-Public Use
  Company Number: PR-MERCK-0510USA01783

PATIENT
  Age: 51 Year
  Sex: Male
  Weight: 114 kg

DRUGS (4)
  1. VIOXX [Suspect]
     Indication: PAIN
     Route: 048
     Dates: start: 20030101, end: 20040101
  2. VIOXX [Suspect]
     Route: 048
     Dates: start: 20030101, end: 20040101
  3. CELEBREX [Concomitant]
     Route: 065
  4. BEXTRA [Concomitant]
     Route: 065

REACTIONS (15)
  - ADVERSE EVENT [None]
  - ANGINA PECTORIS [None]
  - ARRHYTHMIA [None]
  - CARDIAC DISORDER [None]
  - CARDIOVASCULAR DISORDER [None]
  - DEPRESSION [None]
  - EMOTIONAL DISORDER [None]
  - HYPERTENSION [None]
  - MUSCLE DISORDER [None]
  - MYOCARDIAL INFARCTION [None]
  - ORGAN FAILURE [None]
  - OVERDOSE [None]
  - PULMONARY EMBOLISM [None]
  - THROMBOSIS [None]
  - VASCULAR OCCLUSION [None]
